FAERS Safety Report 6005353-9 (Version None)
Quarter: 2008Q4

REPORT INFORMATION
  Report Type: 
  Country: None (occurrence: None)
  Receive Date: 20081204
  Receipt Date: 20081126
  Transmission Date: 20090506
  Serious: Yes (Hospitalization)
  Sender: FDA-Public Use
  Company Number: 200814409

PATIENT
  Age: 15 Year
  Sex: Female

DRUGS (1)
  1. VIVAGLOBIN [Suspect]
     Indication: SELECTIVE POLYSACCHARIDE ANTIBODY DEFICIENCY
     Dosage: 60 ML Q1W SC
     Route: 058
     Dates: start: 20081001

REACTIONS (5)
  - COMPLEX REGIONAL PAIN SYNDROME [None]
  - INJECTION SITE SWELLING [None]
  - MOVEMENT DISORDER [None]
  - SWELLING [None]
  - WRONG TECHNIQUE IN DRUG USAGE PROCESS [None]
